FAERS Safety Report 5408529-4 (Version None)
Quarter: 2007Q3

REPORT INFORMATION
  Report Type: 
  Country: None (occurrence: None)
  Receive Date: 20070808
  Receipt Date: 20070807
  Transmission Date: 20080115
  Serious: Yes (Hospitalization)
  Sender: FDA-Public Use
  Company Number: GB-BRISTOL-MYERS SQUIBB COMPANY-13647052

PATIENT
  Age: 50 Year
  Sex: Male

DRUGS (4)
  1. ABILIFY [Suspect]
     Indication: SCHIZOPHRENIA
     Dosage: STARTED 5 MG 09-OCT-2006 INCREASED TO 10MG/D ON 3-NOV-2006
     Route: 048
     Dates: start: 20061009
  2. IMODIUM [Concomitant]
  3. PROCYCLIDINE HYDROCHLORIDE 2MG TAB [Concomitant]
  4. FLUPHENAZINE [Concomitant]

REACTIONS (3)
  - DYSPNOEA [None]
  - PERICARDITIS [None]
  - PLEURAL EFFUSION [None]
